FAERS Safety Report 6724222-X (Version None)
Quarter: 2010Q2

REPORT INFORMATION
  Report Type: 
  Country: None (occurrence: None)
  Receive Date: 20100513
  Receipt Date: 20100504
  Transmission Date: 20101027
  Serious: Yes (Other)
  Sender: FDA-Public Use
  Company Number: US-MERCK-0605USA02763

PATIENT
  Age: 58 Year
  Sex: Female
  Weight: 70 kg

DRUGS (6)
  1. FOSAMAX [Suspect]
     Indication: OSTEOPENIA
     Route: 048
     Dates: start: 20050801, end: 20060511
  2. SYNTHROID [Concomitant]
     Route: 065
  3. VYTORIN [Concomitant]
     Route: 048
     Dates: start: 20040101
  4. EFFEXOR [Concomitant]
     Route: 065
  5. ACTONEL [Concomitant]
     Indication: OSTEOPENIA
     Route: 065
     Dates: start: 19990101, end: 20050101
  6. CLIMARA [Concomitant]
     Route: 065
     Dates: start: 19930101

REACTIONS (30)
  - ABDOMINAL DISCOMFORT [None]
  - ABSCESS [None]
  - ANXIETY [None]
  - BONE DENSITY DECREASED [None]
  - DECREASED APPETITE [None]
  - DENTAL CARIES [None]
  - DEPRESSION [None]
  - GINGIVAL DISORDER [None]
  - GINGIVAL INFECTION [None]
  - GINGIVITIS [None]
  - HERPES VIRUS INFECTION [None]
  - IMPAIRED HEALING [None]
  - INFECTION [None]
  - INFLAMMATION [None]
  - INTERVERTEBRAL DISC PROTRUSION [None]
  - JAW DISORDER [None]
  - LYMPHADENOPATHY [None]
  - ORAL DISORDER [None]
  - ORAL INFECTION [None]
  - OSTEOMYELITIS [None]
  - PAIN IN JAW [None]
  - PERIODONTAL DISEASE [None]
  - PERIODONTITIS [None]
  - PHOTOSENSITIVITY REACTION [None]
  - PRURITUS [None]
  - RASH [None]
  - RASH PRURITIC [None]
  - SEROTONIN SYNDROME [None]
  - SLEEP TERROR [None]
  - TOOTH DISORDER [None]
